FAERS Safety Report 11917554 (Version 2)
Quarter: 2016Q1

REPORT INFORMATION
  Report Type: Spontaneous
  Country: JP (occurrence: JP)
  Receive Date: 20160114
  Receipt Date: 20160215
  Transmission Date: 20160526
  Serious: Yes (Hospitalization, Other)
  Sender: FDA-Public Use
  Company Number: JP-ASTELLAS-2015JP025377

PATIENT
  Age: 85 Year
  Sex: Female

DRUGS (4)
  1. PRAVASTATIN [Suspect]
     Active Substance: PRAVASTATIN\PRAVASTATIN SODIUM
     Indication: PRODUCT USED FOR UNKNOWN INDICATION
     Route: 048
     Dates: end: 201511
  2. PRAVASTATIN [Suspect]
     Active Substance: PRAVASTATIN\PRAVASTATIN SODIUM
     Route: 048
     Dates: start: 201511
  3. BETANIS [Suspect]
     Active Substance: MIRABEGRON
     Route: 048
     Dates: start: 2015, end: 20151221
  4. BETANIS [Suspect]
     Active Substance: MIRABEGRON
     Indication: HYPERTONIC BLADDER
     Route: 048
     Dates: start: 20140907, end: 201511

REACTIONS (3)
  - Arthralgia [Unknown]
  - Renal impairment [Recovering/Resolving]
  - Myalgia [Unknown]

NARRATIVE: CASE EVENT DATE: 201409
